FAERS Safety Report 5880492-1 (Version None)
Quarter: 2008Q3

REPORT INFORMATION
  Report Type: 
  Country: None (occurrence: None)
  Receive Date: 20080912
  Receipt Date: 20080604
  Transmission Date: 20090109
  Serious: No
  Sender: FDA-Public Use
  Company Number: US-ABBOTT-08P-163-0454305-00

PATIENT
  Sex: Female

DRUGS (14)
  1. HUMIRA [Suspect]
     Indication: PSORIASIS
     Route: 058
     Dates: start: 20080101
  2. HUMIRA [Suspect]
     Indication: PSORIATIC ARTHROPATHY
  3. INSULIN [Concomitant]
     Indication: DRUG USE FOR UNKNOWN INDICATION
  4. DIABETIC MEDICATION [Concomitant]
     Indication: DRUG USE FOR UNKNOWN INDICATION
     Route: 048
  5. LORTAB [Concomitant]
     Indication: PAIN
     Dosage: 5 TABLETS DAILY
  6. METHOTREXATE [Concomitant]
     Indication: DRUG USE FOR UNKNOWN INDICATION
     Dosage: 7 TABLETS WEEKLY
  7. PREDNISONE TAB [Concomitant]
     Indication: DRUG USE FOR UNKNOWN INDICATION
     Dosage: UP TO 10 TABS DAILY
  8. BLOOD PRESSURE MEDICATION [Concomitant]
     Indication: DRUG USE FOR UNKNOWN INDICATION
  9. MULTI-VITAMIN [Concomitant]
     Indication: DRUG USE FOR UNKNOWN INDICATION
  10. MAGNESIUM HYDROXIDE TAB [Concomitant]
     Indication: MINERAL SUPPLEMENTATION
  11. DULOXETINE HYDROCHLORIDE [Concomitant]
     Indication: DEPRESSION
  12. GABAPENTIN [Concomitant]
     Indication: DRUG USE FOR UNKNOWN INDICATION
  13. ALPRAZOLAM [Concomitant]
     Indication: ANXIETY
     Route: 048
  14. UNKNOWN MEDICATION [Concomitant]
     Indication: BURSITIS

REACTIONS (14)
  - ARTHRALGIA [None]
  - DIABETES MELLITUS INADEQUATE CONTROL [None]
  - INJECTION SITE ERYTHEMA [None]
  - INJECTION SITE IRRITATION [None]
  - INJECTION SITE PAIN [None]
  - INJECTION SITE PRURITUS [None]
  - INJECTION SITE REACTION [None]
  - JOINT SWELLING [None]
  - MUSCULOSKELETAL PAIN [None]
  - OEDEMA PERIPHERAL [None]
  - PAIN [None]
  - PAIN IN EXTREMITY [None]
  - PSORIASIS [None]
  - SUICIDAL IDEATION [None]
